FAERS Safety Report 4776459-7 (Version None)
Quarter: 2005Q3

REPORT INFORMATION
  Report Type: 
  Country: None (occurrence: None)
  Receive Date: 20050915
  Receipt Date: 20050831
  Transmission Date: 20060218
  Serious: Yes (Hospitalization)
  Sender: FDA-Public Use
  Company Number: 2005P1000337

PATIENT
  Age: 51 Year
  Sex: Male

DRUGS (10)
  1. RETEVASE [Suspect]
     Indication: ACUTE MYOCARDIAL INFARCTION
     Dosage: X2; IV
     Route: 042
     Dates: start: 20050128, end: 20050128
  2. ABCIXIMAB  (ABCIXIMAB) [Concomitant]
     Indication: ACUTE MYOCARDIAL INFARCTION
     Dosage: IV
     Route: 042
     Dates: start: 20050128, end: 20050125
  3. SIMVASTATIN [Concomitant]
  4. ASPIRIN [Concomitant]
  5. CLOPIDOGREL [Concomitant]
  6. METOPROLOL [Concomitant]
  7. RAMIPRIL [Concomitant]
  8. SULFAMETHIZOLE TAB [Concomitant]
  9. FERROUS FUMARATE [Concomitant]
  10. PENICILLIN V [Concomitant]

REACTIONS (4)
  - ANAEMIA [None]
  - DUODENITIS [None]
  - ULTRASOUND ABDOMEN ABNORMAL [None]
  - URINARY TRACT INFECTION [None]
